FAERS Safety Report 4567999-4 (Version None)
Quarter: 2005Q1

REPORT INFORMATION
  Report Type: 
  Country: None (occurrence: None)
  Receive Date: 20050128
  Receipt Date: 20050119
  Transmission Date: 20050727
  Serious: Yes (Other)
  Sender: FDA-Public Use
  Company Number: 2005014246

PATIENT
  Age: 56 Year
  Sex: Female
  Weight: 85 kg

DRUGS (7)
  1. AROMASIN [Suspect]
     Indication: BREAST CANCER
     Dosage: 25 MG (25 MG, 1 IN 1 D), ORAL
     Route: 048
     Dates: start: 20040513
  2. ATORVASTATIN (ATORVASTATIN) [Concomitant]
  3. LANSOPRAZOLE [Concomitant]
  4. PRIMIDONE [Concomitant]
  5. ACETYLSALICYLIC ACID SRT [Concomitant]
  6. CLOPIDOGREL BISULFATE [Concomitant]
  7. METOPROLOL TARTRATE [Concomitant]

REACTIONS (1)
  - THROMBOCYTOPENIA [None]
